FAERS Safety Report 9484149 (Version 2)
Quarter: 2013Q3

REPORT INFORMATION
  Report Type: Spontaneous
  Country: CA (occurrence: CA)
  Receive Date: 20130828
  Receipt Date: 20130828
  Transmission Date: 20140515
  Serious: Yes (Death, Hospitalization)
  Sender: FDA-Public Use
  Company Number: CA-AMGEN-KDL303905

PATIENT
  Age: 84 Year
  Sex: Female
  Weight: 40.9 kg

DRUGS (1)
  1. ENBREL [Suspect]
     Indication: RHEUMATOID ARTHRITIS
     Dosage: UNK UNK, QWK
     Route: 058
     Dates: start: 20080612

REACTIONS (9)
  - Death [Fatal]
  - Malaise [Unknown]
  - Dehydration [Unknown]
  - Gastric ulcer haemorrhage [Unknown]
  - Pneumonia [Recovered/Resolved with Sequelae]
  - Cystitis [Unknown]
  - Weight decreased [Unknown]
  - Diarrhoea [Recovered/Resolved]
  - Oral fungal infection [Recovered/Resolved]
